FAERS Safety Report 8164919-0 (Version None)
Quarter: 2012Q1

REPORT INFORMATION
  Report Type: 
  Country: None (occurrence: None)
  Receive Date: 20120227
  Receipt Date: 20120217
  Transmission Date: 20120608
  Serious: No
  Sender: FDA-Public Use
  Company Number: US-BIOGENIDEC-2012BI006332

PATIENT
  Age: 32 Year
  Sex: Female

DRUGS (1)
  1. TYSABRI [Suspect]
     Indication: MULTIPLE SCLEROSIS
     Route: 042
     Dates: start: 20110323

REACTIONS (6)
  - COORDINATION ABNORMAL [None]
  - HYPOAESTHESIA [None]
  - FALL [None]
  - FIBROMYALGIA [None]
  - MUSCULOSKELETAL PAIN [None]
  - MUSCULOSKELETAL DISORDER [None]
